FAERS Safety Report 6132261-5 (Version None)
Quarter: 2009Q1

REPORT INFORMATION
  Report Type: 
  Country: None (occurrence: None)
  Receive Date: 20090325
  Receipt Date: 20090316
  Transmission Date: 20090719
  Serious: No
  Sender: FDA-Public Use
  Company Number: CH-AVENTIS-200815449GDDC

PATIENT
  Age: 32 Year
  Sex: Female

DRUGS (1)
  1. ARAVA [Suspect]
     Indication: ARTHRITIS
     Dosage: DOSE QUANTITY: 20
     Route: 048
     Dates: start: 20080424, end: 20080529

REACTIONS (1)
  - DRUG EXPOSURE DURING PREGNANCY [None]
